FAERS Safety Report 5587546-8 (Version None)
Quarter: 2007Q4

REPORT INFORMATION
  Report Type: 
  Country: None (occurrence: None)
  Receive Date: 20071207
  Receipt Date: 20070420
  Transmission Date: 20080405
  Serious: Yes (Other)
  Sender: FDA-Public Use
  Company Number: 2007031914

PATIENT
  Sex: Female

DRUGS (2)
  1. MINOXIDIL [Suspect]
     Indication: COMPLEX REGIONAL PAIN SYNDROME
     Dosage: TOPICAL
     Route: 061
  2. MINOXIDIL [Suspect]
     Indication: HEPATITIS
     Dosage: TOPICAL
     Route: 061

REACTIONS (2)
  - DRUG INEFFECTIVE FOR UNAPPROVED INDICATION [None]
  - PAIN [None]
